FAERS Safety Report 17683983 (Version 2)
Quarter: 2020Q2

REPORT INFORMATION
  Report Type: Report from Study
  Country: IT (occurrence: IT)
  Receive Date: 20200420
  Receipt Date: 20200522
  Transmission Date: 20200714
  Serious: Yes (Hospitalization)
  Sender: FDA-Public Use
  Company Number: IT-TEVA-2020-IT-1225492

PATIENT
  Age: 66 Year
  Sex: Female

DRUGS (4)
  1. AMISULPRIDE [Suspect]
     Active Substance: AMISULPRIDE
     Indication: DRUG ABUSE
     Dosage: 200 MG
     Route: 048
     Dates: start: 20200126, end: 20200126
  2. PROPRANOLOL [Suspect]
     Active Substance: PROPRANOLOL HYDROCHLORIDE
     Indication: DRUG ABUSE
     Dosage: 1.2 GRAM
     Route: 048
     Dates: start: 20200126, end: 20200126
  3. PAROXETINE. [Suspect]
     Active Substance: PAROXETINE
     Indication: DRUG ABUSE
     Dosage: 20 MG
     Route: 048
     Dates: start: 20200126, end: 20200126
  4. MIRTAZAPINE. [Suspect]
     Active Substance: MIRTAZAPINE
     Indication: DRUG ABUSE
     Dosage: 1.8 GRAM
     Route: 048
     Dates: start: 20200126, end: 20200126

REACTIONS (5)
  - Drug abuse [Recovered/Resolved]
  - Vomiting [Recovered/Resolved]
  - Sopor [Recovered/Resolved]
  - Bradyphrenia [Recovered/Resolved]
  - Hypokinesia [Recovered/Resolved]

NARRATIVE: CASE EVENT DATE: 20200126
